FAERS Safety Report 9285538 (Version 2)
Quarter: 2014Q2

REPORT INFORMATION
  Report Type: Spontaneous
  Country: US (occurrence: US)
  Receive Date: 20130513
  Receipt Date: 20140403
  Transmission Date: 20141212
  Serious: No
  Sender: FDA-Public Use
  Company Number: US-PFIZER INC-2013145521

PATIENT
  Age: 57 Year
  Sex: Female

DRUGS (9)
  1. NEURONTIN [Suspect]
     Dosage: UNK
  2. ZOLOFT [Suspect]
     Dosage: UNK
  3. EFFEXOR [Suspect]
     Dosage: UNK
  4. CODEINE [Suspect]
     Dosage: UNK
  5. CYMBALTA [Suspect]
     Dosage: UNK
  6. TALWIN [Suspect]
     Dosage: UNK
  7. PROVIGIL [Suspect]
     Dosage: UNK
  8. OPANA [Suspect]
     Dosage: UNK
  9. LEXAPRO [Suspect]
     Dosage: UNK

REACTIONS (1)
  - Drug hypersensitivity [Unknown]
